FAERS Safety Report 7057811-6 (Version None)
Quarter: 2010Q4

REPORT INFORMATION
  Report Type: 
  Country: None (occurrence: None)
  Receive Date: 20101022
  Receipt Date: 20101011
  Transmission Date: 20110411
  Serious: Yes (Disabling, Other)
  Sender: FDA-Public Use
  Company Number: US-PFIZER INC-2010101433

PATIENT
  Sex: Female

DRUGS (5)
  1. CHANTIX [Suspect]
     Indication: SMOKING CESSATION THERAPY
     Dosage: UNK
     Dates: start: 20061001, end: 20080901
  2. LORTAB [Concomitant]
     Indication: ORAL HERPES
     Dosage: UNK
     Dates: start: 20060601
  3. MOTRIN [Concomitant]
     Indication: ARTHRALGIA
     Dosage: UNK
     Dates: start: 20060601, end: 20071201
  4. MOTRIN [Concomitant]
     Indication: NECK PAIN
  5. MOTRIN [Concomitant]
     Indication: RADICULOPATHY

REACTIONS (6)
  - ANXIETY [None]
  - CONVULSION [None]
  - MAJOR DEPRESSION [None]
  - MENTAL DISORDER [None]
  - PANIC ATTACK [None]
  - SUICIDAL IDEATION [None]
